FAERS Safety Report 9434570 (Version 1)
Quarter: 2013Q3

REPORT INFORMATION
  Report Type: Spontaneous
  Country: US (occurrence: None)
  Receive Date: 20130731
  Receipt Date: 20130731
  Transmission Date: 20140515
  Serious: Yes (Other)
  Sender: FDA-Public Use
  Company Number: None

PATIENT
  Age: 36 Year
  Sex: Female

DRUGS (1)
  1. SODIUM FERRIC GLUCONATE COMPLEX [Suspect]
     Indication: ANAEMIA
     Route: 041
     Dates: start: 20130729, end: 20130729

REACTIONS (5)
  - Paraesthesia [None]
  - Pain [None]
  - Swelling [None]
  - Pain in extremity [None]
  - Arthralgia [None]
